FAERS Safety Report 6942445-1 (Version None)
Quarter: 2010Q3

REPORT INFORMATION
  Report Type: 
  Country: None (occurrence: None)
  Receive Date: 20100826
  Receipt Date: 20100818
  Transmission Date: 20110219
  Serious: Yes (Hospitalization)
  Sender: FDA-Public Use
  Company Number: PHHO2010JP04236

PATIENT
  Sex: Male
  Weight: 69 kg

DRUGS (14)
  1. BLINDED ALISKIREN ALI+TAB+CF [Suspect]
     Dosage: NO TREATMENT
  2. BLINDED ENALAPRIL COMP-ENA+ [Suspect]
     Dosage: NO TREATMENT
  3. BLINDED NO TREATMENT RECEIVED NOMED [Suspect]
     Dosage: NO TREATMENT
  4. ALISKIREN [Suspect]
     Indication: CARDIAC FAILURE CHRONIC
     Dosage: 150 MG, QD
     Dates: start: 20100206
  5. ARTIST [Concomitant]
  6. ANCARON [Concomitant]
  7. LANIRAPID [Concomitant]
  8. LASIX [Concomitant]
  9. ACARDI [Concomitant]
  10. ALINAMIN [Concomitant]
  11. NEUQUINON [Concomitant]
  12. ZYLORIC [Concomitant]
  13. WARFARIN SODIUM [Concomitant]
  14. FLUTIDE DISKUS [Concomitant]

REACTIONS (12)
  - BUNDLE BRANCH BLOCK LEFT [None]
  - CARDIAC FAILURE [None]
  - COUGH [None]
  - DYSPNOEA EXERTIONAL [None]
  - EJECTION FRACTION DECREASED [None]
  - ENDOTRACHEAL INTUBATION [None]
  - HYPERHIDROSIS [None]
  - IMPLANTABLE DEFIBRILLATOR INSERTION [None]
  - INFECTION [None]
  - ORTHOPNOEA [None]
  - PNEUMONIA [None]
  - PYREXIA [None]
